FAERS Safety Report 19945156 (Version 3)
Quarter: 2021Q4

REPORT INFORMATION
  Report Type: Report from Study
  Country: None (occurrence: SE)
  Receive Date: 20211011
  Receipt Date: 20211017
  Transmission Date: 20220303
  Serious: Yes (Hospitalization, Other)
  Sender: FDA-Public Use
  Company Number: SE-ABBVIE-21K-150-4111054-00

PATIENT
  Sex: Male

DRUGS (3)
  1. CARBIDOPA\LEVODOPA [Suspect]
     Active Substance: CARBIDOPA\LEVODOPA
     Indication: Parkinson^s disease
     Dosage: DUODOPA_DUOPA DUODOPA ABV ROW PEG 15F
     Route: 050
     Dates: start: 20151102
  2. CARBIDOPA\LEVODOPA [Suspect]
     Active Substance: CARBIDOPA\LEVODOPA
     Dosage: CURRENT DOSAGE: CONTINUOUS DOSE DAY: 4.1ML/H, MORNING DOSE:?3ML, EXTRA DOSE DAY: 2.7ML.
     Route: 050
     Dates: start: 20211011, end: 20211011
  3. CARBIDOPA\LEVODOPA [Suspect]
     Active Substance: CARBIDOPA\LEVODOPA
     Dosage: CD: CONTINUOUS DOSE NIGHT: 2ML/H, EXTRA DOSE NIGHT:?2.7ML. THERAPY DURATION: 24 HOURS.
     Route: 050
     Dates: start: 20211011

REACTIONS (3)
  - Embedded device [Not Recovered/Not Resolved]
  - Intentional device misuse [Unknown]
  - Hallucination [Not Recovered/Not Resolved]
